FAERS Safety Report 7334493-7 (Version None)
Quarter: 2011Q1

REPORT INFORMATION
  Report Type: 
  Country: None (occurrence: None)
  Receive Date: 20110307
  Receipt Date: 20110225
  Transmission Date: 20110831
  Serious: Yes (Other)
  Sender: FDA-Public Use
  Company Number: US-MILLENNIUM PHARMACEUTICALS, INC.-2011-00515

PATIENT
  Age: 43 Year
  Sex: Female
  Weight: 29.841 kg

DRUGS (11)
  1. DEXAMETHASONE [Suspect]
     Indication: MULTIPLE MYELOMA
     Dosage: 20 MG, CYCLIC
     Route: 048
  2. LOESTRIN 1.5/30 [Concomitant]
  3. VELCADE [Suspect]
     Indication: MULTIPLE MYELOMA
     Dosage: 1.3 MG/M2, CYCLIC
     Route: 042
  4. DARVOCET [Concomitant]
  5. ADVIL LIQUI-GELS [Concomitant]
  6. DOXIL [Suspect]
     Indication: MULTIPLE MYELOMA
     Dosage: 30 MG/M2, CYCLIC
     Route: 042
  7. LENALIDOMIDE [Suspect]
     Indication: MULTIPLE MYELOMA
     Dosage: 20 MG, CYCLIC
     Route: 048
  8. HYDROCODONE BITARTRATE [Concomitant]
  9. ZITHROMAX [Concomitant]
  10. MULTI-VITAMINS [Concomitant]
  11. TYLENOL (CAPLET) [Concomitant]

REACTIONS (1)
  - MALIGNANT MELANOMA [None]
